FAERS Safety Report 9246718 (Version 1)
Quarter: 2013Q2

REPORT INFORMATION
  Report Type: Spontaneous
  Country: US (occurrence: US)
  Receive Date: 20130422
  Receipt Date: 20130422
  Transmission Date: 20140414
  Serious: No
  Sender: FDA-Public Use
  Company Number: US-PFIZER INC-2013125334

PATIENT
  Age: 28 Year
  Sex: Male
  Weight: 95.24 kg

DRUGS (10)
  1. NEURONTIN [Suspect]
     Indication: COMPLEX REGIONAL PAIN SYNDROME
     Dosage: 3600 MG, UNK
     Route: 048
  2. NEURONTIN [Suspect]
     Dosage: UNK
     Route: 048
  3. NEURONTIN [Suspect]
     Dosage: 1200 MG, 2X/DAY
  4. LYRICA [Suspect]
     Indication: COMPLEX REGIONAL PAIN SYNDROME
     Dosage: 200 MG, 2X/DAY
  5. TRAMADOL [Concomitant]
     Dosage: 400 MG, 1X/DAY
  6. CLONAZEPAM [Concomitant]
     Indication: ANXIETY
     Dosage: UNK
  7. BACLOFEN [Concomitant]
     Indication: MUSCLE SPASMS
     Dosage: UNK
  8. ATENOLOL [Concomitant]
     Indication: BLOOD PRESSURE
     Dosage: UNK
  9. MOBIC [Concomitant]
     Dosage: UNK
  10. VISTARIL [Concomitant]
     Indication: SLEEP DISORDER
     Dosage: UNK

REACTIONS (3)
  - Off label use [Unknown]
  - Drug ineffective for unapproved indication [Unknown]
  - Intentional drug misuse [Unknown]
